FAERS Safety Report 5000871-4 (Version None)
Quarter: 2006Q2

REPORT INFORMATION
  Report Type: 
  Country: None (occurrence: None)
  Receive Date: 20060512
  Receipt Date: 20050323
  Transmission Date: 20061013
  Serious: No
  Sender: FDA-Public Use
  Company Number: US-GLAXOSMITHKLINE-A0551265A

PATIENT
  Sex: Male

DRUGS (5)
  1. RELAFEN [Suspect]
     Indication: RHEUMATOID ARTHRITIS
     Route: 048
     Dates: end: 20050321
  2. LIPITOR [Concomitant]
     Dosage: 10MG PER DAY
     Route: 065
  3. METFORMIN [Concomitant]
     Dosage: 1000MG PER DAY
     Route: 065
  4. VITAMIN B COMPLEX CAP [Concomitant]
     Route: 065
  5. FOLIC ACID [Concomitant]
     Route: 065

REACTIONS (2)
  - PHOTOPSIA [None]
  - SOMNOLENCE [None]
